FAERS Safety Report 9133724 (Version 1)
Quarter: 2013Q1

REPORT INFORMATION
  Report Type: Spontaneous
  Country: US (occurrence: US)
  Receive Date: 20130302
  Receipt Date: 20130302
  Transmission Date: 20140127
  Serious: No
  Sender: FDA-Public Use
  Company Number: US-ENDO PHARMACEUTICALS INC.-FRVA20100017

PATIENT
  Sex: Female

DRUGS (2)
  1. FROVA [Suspect]
     Indication: PRODUCT USED FOR UNKNOWN INDICATION
     Dosage: 2.5 MG
     Route: 048
  2. LEXAPRO [Concomitant]

REACTIONS (4)
  - Feeling abnormal [Unknown]
  - Drug dispensing error [Recovered/Resolved]
  - Chest pain [Unknown]
  - Headache [Unknown]
